FAERS Safety Report 6945614-X (Version None)
Quarter: 2010Q3

REPORT INFORMATION
  Report Type: 
  Country: None (occurrence: None)
  Receive Date: 20100819
  Receipt Date: 20100803
  Transmission Date: 20110219
  Serious: Yes (Hospitalization)
  Sender: FDA-Public Use
  Company Number: 2010003128

PATIENT
  Sex: Female

DRUGS (2)
  1. TARCEVA [Suspect]
     Indication: LUNG NEOPLASM MALIGNANT
     Dosage: 150 MG, QD, ORAL, 100 MG, QD, ORAL
     Route: 048
     Dates: start: 20100401
  2. TARCEVA [Suspect]
     Indication: LUNG NEOPLASM MALIGNANT
     Dosage: 150 MG, QD, ORAL, 100 MG, QD, ORAL
     Route: 048
     Dates: start: 20100401

REACTIONS (6)
  - BLOOD GASES ABNORMAL [None]
  - DIARRHOEA [None]
  - HEART RATE INCREASED [None]
  - LUNG NEOPLASM MALIGNANT [None]
  - MALIGNANT NEOPLASM PROGRESSION [None]
  - RESPIRATORY RATE INCREASED [None]
